FAERS Safety Report 16456620 (Version 1)
Quarter: 2019Q2

REPORT INFORMATION
  Report Type: Spontaneous
  Country: US (occurrence: US)
  Receive Date: 20190509
  Receipt Date: 20190509
  Transmission Date: 20190711
  Serious: Yes (Hospitalization)
  Sender: FDA-Public Use
  Company Number: None

PATIENT
  Age: 68 Year
  Sex: Male
  Weight: 60.7 kg

DRUGS (10)
  1. RANITIDINE. [Concomitant]
     Active Substance: RANITIDINE
  2. ALLEGRA [Concomitant]
     Active Substance: FEXOFENADINE HYDROCHLORIDE
  3. OMEPRAZOLE. [Concomitant]
     Active Substance: OMEPRAZOLE
  4. MULTIVITAMIN [Concomitant]
     Active Substance: VITAMINS
  5. CLARITIN [Concomitant]
     Active Substance: LORATADINE
  6. FLAXSEED [Concomitant]
     Active Substance: FLAX SEED
  7. NIVOLUMAB - 240MG [Suspect]
     Active Substance: NIVOLUMAB
     Indication: GASTROINTESTINAL STROMAL TUMOUR
     Route: 042
     Dates: start: 20170803, end: 20170927
  8. B12/D3 [Concomitant]
  9. GLUCOSAMINE-CHONDROTIN [Concomitant]
  10. DRONABINOL. [Concomitant]
     Active Substance: DRONABINOL

REACTIONS (10)
  - Scan abdomen abnormal [None]
  - Extravasation [None]
  - Disease progression [None]
  - Abdominal mass [None]
  - Necrosis [None]
  - Infection [None]
  - Packed red blood cell transfusion [None]
  - Lower gastrointestinal haemorrhage [None]
  - Platelet transfusion [None]
  - Rectal haemorrhage [None]

NARRATIVE: CASE EVENT DATE: 20170928
